FAERS Safety Report 19190015 (Version 2)
Quarter: 2021Q2

REPORT INFORMATION
  Report Type: Other
  Country: US (occurrence: US)
  Receive Date: 20210428
  Receipt Date: 20210503
  Transmission Date: 20210717
  Serious: Yes (Other)
  Sender: FDA-Public Use
  Company Number: US-ROCHE-2818320

PATIENT
  Age: 68 Year
  Sex: Male

DRUGS (2)
  1. DORNASE ALFA. [Suspect]
     Active Substance: DORNASE ALFA
     Indication: INFECTIOUS PLEURAL EFFUSION
     Route: 034
  2. ALTEPLASE. [Suspect]
     Active Substance: ALTEPLASE
     Indication: INFECTIOUS PLEURAL EFFUSION
     Route: 034

REACTIONS (1)
  - Haemothorax [Unknown]
